FAERS Safety Report 6124863-7 (Version None)
Quarter: 2009Q1

REPORT INFORMATION
  Report Type: 
  Country: None (occurrence: None)
  Receive Date: 20090319
  Receipt Date: 20090308
  Transmission Date: 20090719
  Serious: Yes (Other)
  Sender: FDA-Public Use
  Company Number: CA-JNJFOC-20090302289

PATIENT
  Sex: Female

DRUGS (5)
  1. REMICADE [Suspect]
     Route: 042
  2. REMICADE [Suspect]
     Indication: CROHN'S DISEASE
     Route: 042
  3. BENADRYL [Concomitant]
     Indication: PREMEDICATION
  4. CORTISONE [Concomitant]
     Indication: PREMEDICATION
  5. GRAVOL TAB [Concomitant]
     Indication: PREMEDICATION

REACTIONS (7)
  - ARTHRALGIA [None]
  - DIARRHOEA [None]
  - DRUG EFFECT DECREASED [None]
  - GAIT DISTURBANCE [None]
  - GASTROINTESTINAL DISORDER [None]
  - NAUSEA [None]
  - NEOPLASM [None]
